FAERS Safety Report 10142537 (Version 2)
Quarter: 2014Q2

REPORT INFORMATION
  Report Type: Spontaneous
  Country: US (occurrence: US)
  Receive Date: 20140430
  Receipt Date: 20140526
  Transmission Date: 20141212
  Serious: Yes (Death)
  Sender: FDA-Public Use
  Company Number: US-BRISTOL-MYERS SQUIBB COMPANY-20662631

PATIENT
  Age: 59 Year
  Sex: Male

DRUGS (11)
  1. FARXIGA [Suspect]
     Indication: TYPE 2 DIABETES MELLITUS
     Dosage: 2 DOSES
     Route: 048
     Dates: start: 20140411
  2. LISINOPRIL [Concomitant]
     Dosage: 1DF: 40, UNIT:NOS
  3. METOPROLOL [Concomitant]
     Dosage: 1DF: 100,UNIT:NOS
  4. DIGOXIN [Concomitant]
     Dosage: 1DF: 25, UNIT:NOS
  5. METHADONE [Concomitant]
     Dosage: 1DF: 10, UNIT:NOS
  6. AMIODARONE [Concomitant]
     Dosage: 1DF: 100,UNIT:NOS
  7. PRADAXA [Concomitant]
     Dosage: 1DF: 150,UNIT:NOS
  8. GLIMEPIRIDE [Concomitant]
  9. METFORMIN [Concomitant]
     Dosage: 1DF: 100, UNIT:NOS
  10. AMLODIPINE [Concomitant]
     Dosage: 1DF: 10,UNIT:NOS
  11. TAMSULOSIN [Concomitant]

REACTIONS (1)
  - Death [Fatal]
